FAERS Safety Report 5333771-0 (Version None)
Quarter: 2007Q2

REPORT INFORMATION
  Report Type: 
  Country: None (occurrence: None)
  Receive Date: 20070524
  Receipt Date: 20070514
  Transmission Date: 20071010
  Serious: Yes (Other)
  Sender: FDA-Public Use
  Company Number: GB-PFIZER INC-2007039683

PATIENT
  Sex: Male

DRUGS (9)
  1. EXUBERA [Suspect]
     Indication: DIABETES MELLITUS
     Route: 055
  2. GLICLAZIDE [Concomitant]
  3. METFORMIN HCL [Concomitant]
  4. ACETYLSALICYLIC ACID SRT [Concomitant]
  5. NICORANDIL [Concomitant]
  6. PARIET [Concomitant]
  7. WARFARIN SODIUM [Concomitant]
  8. LIPITOR [Concomitant]
  9. ATENOLOL [Concomitant]

REACTIONS (2)
  - BLOOD GLUCOSE INCREASED [None]
  - HYPOGLYCAEMIA [None]
